FAERS Safety Report 23927169 (Version 3)
Quarter: 2025Q1

REPORT INFORMATION
  Report Type: Spontaneous
  Country: US (occurrence: US)
  Receive Date: 20240531
  Receipt Date: 20250123
  Transmission Date: 20250409
  Serious: Yes (Hospitalization, Other)
  Sender: RADIUS PHARM
  Company Number: US-RADIUS HEALTH INC.-2023US006800

PATIENT
  Sex: Male

DRUGS (1)
  1. TYMLOS [Suspect]
     Active Substance: ABALOPARATIDE
     Indication: Senile osteoporosis
     Route: 058
     Dates: start: 20231213

REACTIONS (4)
  - Internal haemorrhage [Unknown]
  - Blood pressure decreased [Not Recovered/Not Resolved]
  - Intentional dose omission [Unknown]
  - Heart rate increased [Unknown]
